FAERS Safety Report 12839739 (Version 2)
Quarter: 2016Q4

REPORT INFORMATION
  Report Type: Spontaneous
  Country: US (occurrence: US)
  Receive Date: 20161012
  Receipt Date: 20161014
  Transmission Date: 20170207
  Serious: Yes (Other)
  Sender: FDA-Public Use
  Company Number: US-PFIZER INC-2016474699

PATIENT
  Age: 67 Year
  Sex: Female
  Weight: 84 kg

DRUGS (3)
  1. XALATAN [Suspect]
     Active Substance: LATANOPROST
     Indication: GLAUCOMA
     Dosage: 1 GTT, 1X/DAY, (125MCG-2.5ML, ONE DROP IN EACH EYE, EVERY NIGHT)
  2. XALATAN [Suspect]
     Active Substance: LATANOPROST
     Indication: DIABETIC RETINOPATHY
  3. LATANOPROST. [Suspect]
     Active Substance: LATANOPROST
     Dosage: UNK

REACTIONS (8)
  - Nausea [Recovered/Resolved]
  - Mobility decreased [Unknown]
  - Headache [Recovered/Resolved]
  - Sleep disorder [Recovered/Resolved]
  - Product substitution issue [Unknown]
  - Activities of daily living impaired [Unknown]
  - Decreased appetite [Recovered/Resolved]
  - Vomiting [Unknown]
